FAERS Safety Report 8302511-5 (Version None)
Quarter: 2012Q2

REPORT INFORMATION
  Report Type: 
  Country: None (occurrence: None)
  Receive Date: 20120420
  Receipt Date: 20120406
  Transmission Date: 20120825
  Serious: Yes (Other)
  Sender: FDA-Public Use
  Company Number: CHPA2012US008991

PATIENT
  Age: 58 Year
  Sex: Female

DRUGS (7)
  1. BISACODYL [Concomitant]
  2. EXCEDRIN (MIGRAINE) [Suspect]
     Indication: HEADACHE
     Dosage: 1-2, WHEN NEEDED
     Route: 048
  3. CRESTOR [Concomitant]
     Indication: BLOOD CHOLESTEROL INCREASED
     Dosage: UNK
     Dates: start: 20080101
  4. DARVOCET-N 50 [Suspect]
     Dosage: UNK, UNK
  5. BENADRYL ^PARKE DAVIS^                  /AUT/ [Concomitant]
  6. MAALOX ANTACID/ANTIGAS RS LIQ COOL MINT [Suspect]
     Indication: BURNING SENSATION
     Dosage: 1 TSP, UNK
     Route: 048
     Dates: start: 20090101, end: 20120405
  7. MAALOX ANTACID/ANTIGAS RS LIQ COOL MINT [Suspect]
     Dosage: 3 TSP, UNK
     Route: 048

REACTIONS (13)
  - DIPLOPIA [None]
  - PAIN [None]
  - INSOMNIA [None]
  - ABASIA [None]
  - BURNING SENSATION [None]
  - CONCOMITANT DISEASE AGGRAVATED [None]
  - WEIGHT DECREASED [None]
  - CEREBROVASCULAR ACCIDENT [None]
  - FIBROMYALGIA [None]
  - DEPRESSION [None]
  - UNDERDOSE [None]
  - HAEMORRHAGE [None]
  - THROMBOSIS [None]
